FAERS Safety Report 10034011 (Version 1)
Quarter: 2014Q1

REPORT INFORMATION
  Report Type: Spontaneous
  Country: US (occurrence: None)
  Receive Date: 20140324
  Receipt Date: 20140324
  Transmission Date: 20141002
  Serious: Yes (Hospitalization)
  Sender: FDA-Public Use
  Company Number: None

PATIENT
  Age: 49 Year
  Sex: Female

DRUGS (7)
  1. OXCARBAZEPINE [Suspect]
  2. BENZTROPINE [Concomitant]
  3. BUPROPION XL [Concomitant]
  4. HALOPERIDOL [Concomitant]
  5. LEVTHYROXINE [Concomitant]
  6. SITAGLIPTIN [Concomitant]
  7. VENLAFAZINE [Concomitant]

REACTIONS (1)
  - Hyponatraemia [None]
